FAERS Safety Report 5502977-X (Version None)
Quarter: 2007Q4

REPORT INFORMATION
  Report Type: 
  Country: None (occurrence: None)
  Receive Date: 20071029
  Receipt Date: 20071029
  Transmission Date: 20080405
  Serious: No
  Sender: FDA-Public Use
  Company Number: None

PATIENT
  Age: 54 Year
  Sex: Female
  Weight: 130.6359 kg

DRUGS (2)
  1. MORPHINE SULFATE [Suspect]
     Indication: CARDIAC FAILURE CONGESTIVE
     Dosage: 2MG Q3H PRN IV
     Route: 042
     Dates: start: 20070618
  2. MORPHINE SULFATE [Suspect]
     Indication: PAIN
     Dosage: 2MG Q3H PRN IV
     Route: 042
     Dates: start: 20070618

REACTIONS (2)
  - PRURITUS [None]
  - URTICARIA [None]
